FAERS Safety Report 5825701-X (Version None)
Quarter: 2008Q2

REPORT INFORMATION
  Report Type: 
  Country: None (occurrence: None)
  Receive Date: 20080601
  Receipt Date: 20080219
  Transmission Date: 20081010
  Serious: No
  Sender: FDA-Public Use
  Company Number: US200802005323

PATIENT
  Age: 67 Year
  Sex: Male
  Weight: 99.8 kg

DRUGS (9)
  1. BYETTA [Suspect]
     Indication: TYPE 2 DIABETES MELLITUS
     Dosage: 5 UG, 2/D, SUBCUTANEOUS ; 10 UG, 2/D, SUBCUTANEOUS
     Route: 058
     Dates: start: 20060101, end: 20060101
  2. BYETTA [Suspect]
     Indication: TYPE 2 DIABETES MELLITUS
     Dosage: 5 UG, 2/D, SUBCUTANEOUS ; 10 UG, 2/D, SUBCUTANEOUS
     Route: 058
     Dates: start: 20060101
  3. SIMVASTATIN [Concomitant]
  4. DIOVAN [Concomitant]
  5. GLUCOPHAGE [Concomitant]
  6. PENTOXIFYLLINE [Concomitant]
  7. TRICOR [Concomitant]
  8. TOPROL (METOPROL SUCCINATE) [Concomitant]
  9. AMITRIPTLINE HYDROCHLORIDE TAB [Concomitant]

REACTIONS (5)
  - BURNING SENSATION [None]
  - DRY MOUTH [None]
  - DYSGEUSIA [None]
  - MOUTH INJURY [None]
  - WEIGHT DECREASED [None]
